FAERS Safety Report 5761910-6 (Version None)
Quarter: 2008Q2

REPORT INFORMATION
  Report Type: 
  Country: None (occurrence: None)
  Receive Date: 20080603
  Receipt Date: 20080521
  Transmission Date: 20081010
  Serious: Yes (Hospitalization)
  Sender: FDA-Public Use
  Company Number: SPV1-2008-01167

PATIENT
  Sex: Female
  Weight: 49.9 kg

DRUGS (5)
  1. ADDERALL XR 30 [Suspect]
     Indication: ATTENTION DEFICIT/HYPERACTIVITY DISORDER
     Dosage: 40 MG, 1X/DAY:GD (30MG CAPSULE IN THE AM/10MG CAPSULE IN THE PM, ORAL
     Route: 048
     Dates: start: 20060101, end: 20070101
  2. ADDERALL XR 30 [Suspect]
     Indication: BIPOLAR I DISORDER
     Dosage: 40 MG, 1X/DAY:GD (30MG CAPSULE IN THE AM/10MG CAPSULE IN THE PM, ORAL
     Route: 048
     Dates: start: 20060101, end: 20070101
  3. ADDERALL XR 30 [Suspect]
     Indication: DEPRESSION
     Dosage: 40 MG, 1X/DAY:GD (30MG CAPSULE IN THE AM/10MG CAPSULE IN THE PM, ORAL
     Route: 048
     Dates: start: 20060101, end: 20070101
  4. PROZAC [Suspect]
     Dosage: 1X/AY:QD, ORAL
     Route: 048
     Dates: start: 20060101, end: 20060101
  5. ABILIFY [Concomitant]

REACTIONS (4)
  - AGGRESSION [None]
  - ANGER [None]
  - OVERDOSE [None]
  - SUICIDAL IDEATION [None]
